FAERS Safety Report 6246297-7 (Version None)
Quarter: 2009Q2

REPORT INFORMATION
  Report Type: 
  Country: None (occurrence: None)
  Receive Date: 20090624
  Receipt Date: 20090624
  Transmission Date: 20091009
  Serious: No
  Sender: FDA-Public Use
  Company Number: None

PATIENT
  Age: 62 Year
  Sex: Male
  Weight: 130.18 kg

DRUGS (1)
  1. NIACIN [Suspect]
     Indication: HYPERLIPIDAEMIA
     Dosage: 1500 MG AT BEDTIME PO
     Route: 048
     Dates: start: 20090217, end: 20090329

REACTIONS (6)
  - BURNING SENSATION [None]
  - DIZZINESS [None]
  - NAUSEA [None]
  - PRURITUS [None]
  - URTICARIA [None]
  - VOMITING [None]
